FAERS Safety Report 6082872-0 (Version None)
Quarter: 2009Q1

REPORT INFORMATION
  Report Type: 
  Country: None (occurrence: None)
  Receive Date: 20090218
  Receipt Date: 20090209
  Transmission Date: 20090719
  Serious: Yes (Other)
  Sender: FDA-Public Use
  Company Number: PHHY2008AU22163

PATIENT
  Sex: Female

DRUGS (4)
  1. CLOZARIL [Suspect]
     Indication: HALLUCINATION
     Dosage: 450 UNK, UNK
     Dates: start: 20060501, end: 20061201
  2. CLOZARIL [Suspect]
     Dosage: 450
     Dates: start: 20071201, end: 20080201
  3. CLOZARIL [Suspect]
     Dosage: 250
     Dates: start: 20080902
  4. CLOZARIL [Suspect]
     Dosage: 300 MG/DAY
     Route: 048

REACTIONS (5)
  - CAESAREAN SECTION [None]
  - CYTOMEGALOVIRUS INFECTION [None]
  - DRUG EXPOSURE DURING PREGNANCY [None]
  - PREMATURE LABOUR [None]
  - PREMATURE RUPTURE OF MEMBRANES [None]
